FAERS Safety Report 7276266-X (Version None)
Quarter: 2011Q1

REPORT INFORMATION
  Report Type: 
  Country: None (occurrence: None)
  Receive Date: 20110131
  Receipt Date: 20110118
  Transmission Date: 20110831
  Serious: Yes (Other)
  Sender: FDA-Public Use
  Company Number: B0696291A

PATIENT
  Age: 22 Year
  Sex: Male

DRUGS (8)
  1. TOPOTECAN HYDROCHLORIDE [Suspect]
     Indication: NEPHROBLASTOMA
     Dosage: 4 MG/M2
  2. STEM CELL TRANSPLANT (FORMULATION UNKNOWN) (STEM CELL TRANSPLANT) [Suspect]
  3. CYCLOPHOSPHAMIDE [Suspect]
  4. IFOSFAMIDE [Concomitant]
  5. CARBOPLATIN [Suspect]
     Indication: NEPHROBLASTOMA
  6. MELPHALAN HYDROCHLORIDE [Suspect]
     Indication: NEPHROBLASTOMA
     Dosage: 140 MG/M2
  7. ETOPOSIDE [Suspect]
     Indication: NEPHROBLASTOMA
  8. GRANULOCYTE COL.STIM.FACT [Concomitant]

REACTIONS (12)
  - DIARRHOEA [None]
  - HEPATIC NEOPLASM [None]
  - RECURRENT CANCER [None]
  - BACTERIAL INFECTION [None]
  - EPISTAXIS [None]
  - NEPHROBLASTOMA [None]
  - PYREXIA [None]
  - VOMITING [None]
  - GASTROINTESTINAL TOXICITY [None]
  - HEPATOMEGALY [None]
  - ANAEMIA [None]
  - INTESTINAL OBSTRUCTION [None]
